FAERS Safety Report 4768552-X (Version None)
Quarter: 2005Q3

REPORT INFORMATION
  Report Type: 
  Country: None (occurrence: None)
  Receive Date: 20050914
  Receipt Date: 20050907
  Transmission Date: 20060218
  Serious: Yes (Death)
  Sender: FDA-Public Use
  Company Number: US-JNJFOC-20050902025

PATIENT
  Age: 31 Year
  Sex: Male

DRUGS (5)
  1. HALOPERIDOL [Suspect]
     Indication: DRUG USE FOR UNKNOWN INDICATION
  2. VALPROIC ACID [Suspect]
     Indication: DRUG USE FOR UNKNOWN INDICATION
  3. ZIPRASIDONE [Suspect]
     Indication: DRUG USE FOR UNKNOWN INDICATION
  4. RANITDINE [Suspect]
     Indication: DRUG USE FOR UNKNOWN INDICATION
  5. BENZTROPINE MESYLATE [Suspect]
     Indication: DRUG USE FOR UNKNOWN INDICATION

REACTIONS (5)
  - ATRIAL FIBRILLATION [None]
  - COMPLETED SUICIDE [None]
  - ELECTROCARDIOGRAM QT CORRECTED INTERVAL PROLONGED [None]
  - HYPERPYREXIA [None]
  - INTENTIONAL MISUSE [None]
